FAERS Safety Report 23406662 (Version 1)
Quarter: 2024Q1

REPORT INFORMATION
  Report Type: Spontaneous
  Country: CN (occurrence: CN)
  Receive Date: 20240116
  Receipt Date: 20240116
  Transmission Date: 20240410
  Serious: Yes (Hospitalization, Other)
  Sender: FDA-Public Use
  Company Number: CN-009507513-2401CHN006511

PATIENT
  Age: 56 Year
  Sex: Female
  Weight: 53 kg

DRUGS (7)
  1. KEYTRUDA [Suspect]
     Active Substance: PEMBROLIZUMAB
     Indication: Metaplastic breast carcinoma
     Dosage: 420 MG, ONCE; FORMULATION: INJECTION
     Route: 041
     Dates: start: 20231227, end: 20231227
  2. TRASTUZUMAB [Suspect]
     Active Substance: TRASTUZUMAB
     Indication: Metaplastic breast carcinoma
     Dosage: 318 MG, ONCE
     Route: 041
     Dates: start: 20231227, end: 20231227
  3. TRASTUZUMAB [Suspect]
     Active Substance: TRASTUZUMAB
     Dosage: 318 MG, ONCE
     Route: 041
     Dates: start: 20240106, end: 20240106
  4. DOCETAXEL [Suspect]
     Active Substance: DOCETAXEL\DOCETAXEL ANHYDROUS
     Indication: Metaplastic breast carcinoma
     Dosage: 150 MG, ONCE
     Route: 041
     Dates: start: 20231227, end: 20231227
  5. SODIUM CHLORIDE [Concomitant]
     Active Substance: SODIUM CHLORIDE
     Indication: Medication dilution
     Dosage: 250 ML, ONCE; THE MEDICATION DILUTION OF DOCETAXEL
     Route: 041
     Dates: start: 20231227, end: 20231227
  6. SODIUM CHLORIDE [Concomitant]
     Active Substance: SODIUM CHLORIDE
     Dosage: 250 ML, ONCE; THE MEDICATION DILUTION OF TRASTUZUMAB
     Route: 041
     Dates: start: 20231227, end: 20231227
  7. SODIUM CHLORIDE [Concomitant]
     Active Substance: SODIUM CHLORIDE
     Dosage: 250 ML, ONCE; THE MEDICATION DILUTION OF PEMBROLIZUMAB (KEYTRUDA)
     Route: 041
     Dates: start: 20231227, end: 20231227

REACTIONS (1)
  - Agranulocytosis [Recovering/Resolving]

NARRATIVE: CASE EVENT DATE: 20240105
